FAERS Safety Report 6720975-5 (Version None)
Quarter: 2010Q2

REPORT INFORMATION
  Report Type: 
  Country: None (occurrence: None)
  Receive Date: 20100512
  Receipt Date: 20100426
  Transmission Date: 20101027
  Serious: Yes (Hospitalization)
  Sender: FDA-Public Use
  Company Number: US-BAYER-200940341NA

PATIENT
  Sex: Female
  Weight: 79 kg

DRUGS (10)
  1. YASMIN [Suspect]
     Indication: DRUG USE FOR UNKNOWN INDICATION
     Route: 048
     Dates: start: 20050720, end: 20080710
  2. EFFEXOR XR [Concomitant]
  3. BUPROPION HCL [Concomitant]
  4. IBUPROFEN [Concomitant]
  5. BUPROPRION SR [Concomitant]
  6. AMPHETAMINE SULFATE [Concomitant]
  7. WELLBUTRIN [Concomitant]
  8. TRANSDERM SCOP [Concomitant]
     Route: 062
  9. HYDROXYZINE HCL [Concomitant]
  10. ADDERALL 30 [Concomitant]

REACTIONS (5)
  - BILE DUCT STONE [None]
  - CHOLECYSTITIS CHRONIC [None]
  - CHOLELITHIASIS [None]
  - GALLBLADDER PAIN [None]
  - JAUNDICE [None]
